FAERS Safety Report 11177240 (Version 1)
Quarter: 2015Q2

REPORT INFORMATION
  Report Type: Spontaneous
  Country: JP (occurrence: JP)
  Receive Date: 20150610
  Receipt Date: 20150610
  Transmission Date: 20150821
  Serious: Yes (Hospitalization)
  Sender: FDA-Public Use
  Company Number: JP-SHIONOGI, INC-2015000647

PATIENT

DRUGS (4)
  1. FINIBAX [Suspect]
     Active Substance: DORIPENEM MONOHYDRATE
     Indication: LUNG INFECTION
     Dosage: 1500 MG, QD
     Route: 041
     Dates: start: 20150516, end: 20150521
  2. DALACIN-P [Suspect]
     Active Substance: CLINDAMYCIN\CLINDAMYCIN PHOSPHATE
     Indication: LUNG INFECTION
     Dosage: 2400 MG, QD
     Route: 041
     Dates: start: 20150501
  3. MEROPEN                            /01250501/ [Suspect]
     Active Substance: MEROPENEM
     Indication: LUNG INFECTION
     Dosage: 3000 MG, QD
     Route: 041
     Dates: start: 20150429, end: 20150511
  4. MAXIPIME [Suspect]
     Active Substance: CEFEPIME HYDROCHLORIDE
     Indication: LUNG INFECTION
     Dosage: 4000 MG, QD
     Route: 041
     Dates: start: 20150522, end: 20150525

REACTIONS (3)
  - Sepsis [Unknown]
  - Neutrophil count decreased [Recovering/Resolving]
  - Blood alkaline phosphatase increased [Not Recovered/Not Resolved]

NARRATIVE: CASE EVENT DATE: 20150522
